FAERS Safety Report 6327821-2 (Version None)
Quarter: 2009Q3

REPORT INFORMATION
  Report Type: 
  Country: None (occurrence: None)
  Receive Date: 20090824
  Receipt Date: 20090731
  Transmission Date: 20100115
  Serious: Yes (Other)
  Sender: FDA-Public Use
  Company Number: 2009SP008393

PATIENT
  Age: 33 Year
  Sex: Female
  Weight: 72.5 kg

DRUGS (10)
  1. DESLORATADINE [Suspect]
     Indication: INFLUENZA
     Dosage: 5 MG; QD;
     Dates: start: 20090415, end: 20090425
  2. DESLORATADINE [Suspect]
     Indication: SEASONAL ALLERGY
     Dosage: 5 MG; QD;
     Dates: start: 20090415, end: 20090425
  3. DESLORATADINE [Suspect]
     Indication: INFLUENZA
     Dosage: 5 MG; QD;
     Dates: start: 20090325
  4. DESLORATADINE [Suspect]
     Indication: SEASONAL ALLERGY
     Dosage: 5 MG; QD;
     Dates: start: 20090325
  5. SYMBICORT [Concomitant]
  6. ZOMIG [Concomitant]
  7. IBUPROFEN [Concomitant]
  8. PARACETAMOL [Concomitant]
  9. AMOXICILLIN [Concomitant]
  10. NITROFUR-C [Concomitant]

REACTIONS (3)
  - CHOLELITHIASIS [None]
  - CHOLESTASIS [None]
  - DRUG EXPOSURE DURING PREGNANCY [None]
